FAERS Safety Report 19357332 (Version 1)
Quarter: 2021Q2

REPORT INFORMATION
  Report Type: Spontaneous
  Country: US (occurrence: US)
  Receive Date: 20210601
  Receipt Date: 20210601
  Transmission Date: 20210717
  Serious: No
  Sender: FDA-Public Use
  Company Number: US-AJANTA PHARMA USA INC.-2112154

PATIENT
  Age: 65 Year
  Sex: Female

DRUGS (1)
  1. ZOLMITRIPTAN. [Suspect]
     Active Substance: ZOLMITRIPTAN
     Indication: MIGRAINE

REACTIONS (3)
  - Product packaging difficult to open [Unknown]
  - Product substitution issue [Unknown]
  - Drug ineffective [Unknown]
